FAERS Safety Report 15590122 (Version 3)
Quarter: 2018Q4

REPORT INFORMATION
  Report Type: Spontaneous
  Country: BR (occurrence: BR)
  Receive Date: 20181106
  Receipt Date: 20181219
  Transmission Date: 20190205
  Serious: Yes (Other)
  Sender: FDA-Public Use
  Company Number: BR-PFIZER INC-2018421217

PATIENT
  Age: 46 Year
  Sex: Female

DRUGS (4)
  1. FRONTAL [Suspect]
     Active Substance: ALPRAZOLAM
     Indication: PANIC DISORDER
     Dosage: TAKES THE EXTRA HALF TABLET OF FRONTAL DEPENDING ON THE ANXIETY
  2. FRONTAL [Suspect]
     Active Substance: ALPRAZOLAM
     Indication: ANXIETY
     Dosage: 0.5 DF, TWICE DAILY (HALF A TABLET IN THE MORNING AND HALF AT NIGHT, DEPENDING ON THE DAY)
  3. FRONTAL [Suspect]
     Active Substance: ALPRAZOLAM
     Indication: INSOMNIA
     Dosage: UNK
  4. FRONTAL [Suspect]
     Active Substance: ALPRAZOLAM
     Dosage: UNK

REACTIONS (6)
  - Product physical issue [Unknown]
  - Hypoaesthesia [Not Recovered/Not Resolved]
  - Rheumatoid arthritis [Unknown]
  - Headache [Recovered/Resolved]
  - Poor quality product administered [Unknown]
  - Spinal disorder [Unknown]

NARRATIVE: CASE EVENT DATE: 2016
